APPROVED DRUG PRODUCT: LIVMARLI
Active Ingredient: MARALIXIBAT CHLORIDE
Strength: EQ 9.5MG BASE/ML
Dosage Form/Route: SOLUTION;ORAL
Application: N214662 | Product #001
Applicant: MIRUM PHARMACEUTICALS INC
Approved: Sep 29, 2021 | RLD: Yes | RS: Yes | Type: RX

PATENTS:
Patent 10512657 | Expires: Oct 26, 2032
Patent 11229661 | Expires: Oct 26, 2032
Patent 11918578 | Expires: Feb 12, 2040
Patent 11376251 | Expires: Oct 26, 2032
Patent 11229647 | Expires: Feb 12, 2040
Patent 11376251 | Expires: Oct 26, 2032
Patent 11260053 | Expires: May 26, 2031
Patent 11918578 | Expires: Feb 12, 2040
Patent 11497745 | Expires: Feb 12, 2040
Patent 11260053 | Expires: May 26, 2031
Patent 11229647 | Expires: Feb 12, 2040
Patent 11497745 | Expires: Feb 12, 2040

EXCLUSIVITY:
Code: I-938 | Date: Mar 13, 2027
Code: NCE | Date: Sep 29, 2026
Code: NPP | Date: Mar 13, 2026
Code: ODE-379 | Date: Sep 29, 2028
Code: ODE-429 | Date: Mar 13, 2030
Code: ODE-471 | Date: Mar 13, 2031